FAERS Safety Report 19814683 (Version 1)
Quarter: 2021Q3

REPORT INFORMATION
  Report Type: Spontaneous
  Country: IN (occurrence: IN)
  Receive Date: 20210910
  Receipt Date: 20210910
  Transmission Date: 20211014
  Serious: Yes (Death)
  Sender: FDA-Public Use
  Company Number: IN-PFIZER INC-2019420045

PATIENT
  Age: 68 Year
  Sex: Male
  Weight: 42 kg

DRUGS (7)
  1. DOMSTAL DT [Concomitant]
     Dosage: 10 MG, 2X/DAY (TWICE A DAY 8:00 AM AND 8:00 PM)
     Dates: start: 20170116
  2. CLAVAM 625 [Concomitant]
     Dosage: 1 DF, 3X/DAY X 10 DAYS (THRICE A DAY ? 8 :00 AM , 2:00 PM AND 8.00 PM)
     Dates: start: 20170116
  3. CRIZALK [Suspect]
     Active Substance: CRIZOTINIB
     Indication: NON-SMALL CELL LUNG CANCER METASTATIC
     Dosage: 250 MG, 2X/DAY
     Route: 048
     Dates: start: 20160512, end: 20170609
  4. PANTOPRAZOLE [Concomitant]
     Active Substance: PANTOPRAZOLE
     Dosage: 40 MG, 1X/DAY
     Dates: start: 20170116
  5. ZORRENT [Concomitant]
     Dosage: 4 MG, 1X/DAY
     Dates: start: 20170116
  6. CRIZALK [Suspect]
     Active Substance: CRIZOTINIB
     Dosage: 250 MG, 2X/DAY (8:00 AM AND 8.00 PM)
     Dates: start: 20170116
  7. GLEVO [Concomitant]
     Active Substance: LEVOFLOXACIN
     Dosage: 500 MG, 1X/DAY
     Dates: start: 20170116

REACTIONS (4)
  - Death [Fatal]
  - Nausea [Recovering/Resolving]
  - Decreased appetite [Recovering/Resolving]
  - Peripheral swelling [Recovering/Resolving]

NARRATIVE: CASE EVENT DATE: 20170609
